FAERS Safety Report 6453692-X (Version None)
Quarter: 2009Q4

REPORT INFORMATION
  Report Type: 
  Country: None (occurrence: None)
  Receive Date: 20091124
  Receipt Date: 20091118
  Transmission Date: 20100525
  Serious: Yes (Death, Other)
  Sender: FDA-Public Use
  Company Number: PHHY2009JP50908

PATIENT
  Sex: Male

DRUGS (1)
  1. GLEEVEC [Suspect]
     Indication: CHRONIC MYELOID LEUKAEMIA
     Route: 048

REACTIONS (11)
  - DECREASED APPETITE [None]
  - GASTRECTOMY [None]
  - GASTRIC CANCER STAGE I [None]
  - GASTRIC TUBE RECONSTRUCTION [None]
  - HYPERBILIRUBINAEMIA [None]
  - LUNG ABSCESS [None]
  - OPERATIVE HAEMORRHAGE [None]
  - PLEURAL EFFUSION [None]
  - PULMONARY CONGESTION [None]
  - PULMONARY OEDEMA [None]
  - SIGNET-RING CELL CARCINOMA [None]
